FAERS Safety Report 12447605 (Version 1)
Quarter: 2016Q2

REPORT INFORMATION
  Report Type: Spontaneous
  Country: CN (occurrence: CN)
  Receive Date: 20160608
  Receipt Date: 20160608
  Transmission Date: 20160815
  Serious: Yes (Death, Other)
  Sender: FDA-Public Use
  Company Number: CN-ASTRAZENECA-2016SE60260

PATIENT
  Age: 15805 Day
  Sex: Male

DRUGS (4)
  1. IRESSA [Suspect]
     Active Substance: GEFITINIB
     Indication: LUNG NEOPLASM MALIGNANT
     Route: 048
     Dates: start: 20151001, end: 20151016
  2. MOXIFLOXACIN. [Concomitant]
     Active Substance: MOXIFLOXACIN
     Indication: ANTIINFLAMMATORY THERAPY
  3. ZOLEDRONIC ACID [Concomitant]
     Active Substance: ZOLEDRONIC ACID
  4. TRAMADOL HYDROCHLORIDE. [Concomitant]
     Active Substance: TRAMADOL HYDROCHLORIDE

REACTIONS (8)
  - Metastases to bone [Unknown]
  - Respiratory failure [Unknown]
  - Pulmonary oedema [Unknown]
  - Diarrhoea [Recovering/Resolving]
  - Rash [Recovering/Resolving]
  - Interstitial lung disease [Fatal]
  - Haemoptysis [Unknown]
  - Hypotension [Unknown]

NARRATIVE: CASE EVENT DATE: 20151015
